FAERS Safety Report 5068352-X (Version None)
Quarter: 2006Q3

REPORT INFORMATION
  Report Type: 
  Country: None (occurrence: None)
  Receive Date: 20060802
  Receipt Date: 20050812
  Transmission Date: 20061208
  Serious: No
  Sender: FDA-Public Use
  Company Number: US-BRISTOL-MYERS SQUIBB COMPANY-13076864

PATIENT
  Age: 79 Year
  Sex: Female
  Weight: 63 kg

DRUGS (6)
  1. COUMADIN [Suspect]
     Indication: HEART VALVE OPERATION
     Dates: start: 19980801
  2. CARDIZEM [Concomitant]
  3. PREMARIN [Concomitant]
  4. LANOXIN [Concomitant]
  5. FUROSEMIDE [Concomitant]
  6. PAXIL [Concomitant]

REACTIONS (1)
  - INTERNATIONAL NORMALISED RATIO DECREASED [None]
